FAERS Safety Report 25042899 (Version 1)
Quarter: 2025Q1

REPORT INFORMATION
  Report Type: Spontaneous
  Country: FR (occurrence: FR)
  Receive Date: 20250305
  Receipt Date: 20250305
  Transmission Date: 20250409
  Serious: Yes (Hospitalization)
  Sender: MYLAN
  Company Number: None

PATIENT
  Age: 54 Year
  Sex: Female
  Weight: 66.5 kg

DRUGS (90)
  1. AMLODIPINE [Suspect]
     Active Substance: AMLODIPINE BESYLATE
     Indication: Product used for unknown indication
     Dosage: 5 MILLIGRAM, QD
     Dates: start: 20250114, end: 20250120
  2. AMLODIPINE [Suspect]
     Active Substance: AMLODIPINE BESYLATE
     Dosage: 5 MILLIGRAM, QD
     Route: 065
     Dates: start: 20250114, end: 20250120
  3. AMLODIPINE [Suspect]
     Active Substance: AMLODIPINE BESYLATE
     Dosage: 5 MILLIGRAM, QD
     Route: 065
     Dates: start: 20250114, end: 20250120
  4. AMLODIPINE [Suspect]
     Active Substance: AMLODIPINE BESYLATE
     Dosage: 5 MILLIGRAM, QD
     Dates: start: 20250114, end: 20250120
  5. PANTOPRAZOLE [Suspect]
     Active Substance: PANTOPRAZOLE
     Indication: Product used for unknown indication
     Dosage: 20 MILLIGRAM, QD
     Dates: start: 20250113, end: 20250119
  6. PANTOPRAZOLE [Suspect]
     Active Substance: PANTOPRAZOLE
     Dosage: 20 MILLIGRAM, QD
     Route: 065
     Dates: start: 20250113, end: 20250119
  7. PANTOPRAZOLE [Suspect]
     Active Substance: PANTOPRAZOLE
     Dosage: 20 MILLIGRAM, QD
     Route: 065
     Dates: start: 20250113, end: 20250119
  8. PANTOPRAZOLE [Suspect]
     Active Substance: PANTOPRAZOLE
     Dosage: 20 MILLIGRAM, QD
     Dates: start: 20250113, end: 20250119
  9. ATORVASTATIN [Suspect]
     Active Substance: ATORVASTATIN
     Indication: Blood cholesterol
     Dosage: 10 MILLIGRAM, QD
     Dates: end: 20250120
  10. ATORVASTATIN [Suspect]
     Active Substance: ATORVASTATIN
     Dosage: 10 MILLIGRAM, QD
     Route: 065
     Dates: end: 20250120
  11. ATORVASTATIN [Suspect]
     Active Substance: ATORVASTATIN
     Dosage: 10 MILLIGRAM, QD
     Route: 065
     Dates: end: 20250120
  12. ATORVASTATIN [Suspect]
     Active Substance: ATORVASTATIN
     Dosage: 10 MILLIGRAM, QD
     Dates: end: 20250120
  13. ACETAMINOPHEN [Suspect]
     Active Substance: ACETAMINOPHEN
     Indication: Pain
     Dosage: 3000 MILLIGRAM, QD
     Dates: start: 20250115, end: 20250119
  14. ACETAMINOPHEN [Suspect]
     Active Substance: ACETAMINOPHEN
     Dosage: 3000 MILLIGRAM, QD
     Route: 065
     Dates: start: 20250115, end: 20250119
  15. ACETAMINOPHEN [Suspect]
     Active Substance: ACETAMINOPHEN
     Dosage: 3000 MILLIGRAM, QD
     Route: 065
     Dates: start: 20250115, end: 20250119
  16. ACETAMINOPHEN [Suspect]
     Active Substance: ACETAMINOPHEN
     Dosage: 3000 MILLIGRAM, QD
     Dates: start: 20250115, end: 20250119
  17. BACTRIM [Suspect]
     Active Substance: SULFAMETHOXAZOLE\TRIMETHOPRIM
     Indication: Prophylaxis
     Dosage: 1 DOSAGE FORM, QD
     Dates: start: 20250113, end: 20250117
  18. BACTRIM [Suspect]
     Active Substance: SULFAMETHOXAZOLE\TRIMETHOPRIM
     Dosage: 1 DOSAGE FORM, QD
     Route: 065
     Dates: start: 20250113, end: 20250117
  19. BACTRIM [Suspect]
     Active Substance: SULFAMETHOXAZOLE\TRIMETHOPRIM
     Dosage: 1 DOSAGE FORM, QD
     Route: 065
     Dates: start: 20250113, end: 20250117
  20. BACTRIM [Suspect]
     Active Substance: SULFAMETHOXAZOLE\TRIMETHOPRIM
     Dosage: 1 DOSAGE FORM, QD
     Dates: start: 20250113, end: 20250117
  21. CELLCEPT [Suspect]
     Active Substance: MYCOPHENOLATE MOFETIL
     Indication: Prophylaxis against transplant rejection
     Dosage: 1000 MILLIGRAM, QD
     Dates: end: 20250120
  22. CELLCEPT [Suspect]
     Active Substance: MYCOPHENOLATE MOFETIL
     Dosage: 1000 MILLIGRAM, QD
     Route: 065
     Dates: end: 20250120
  23. CELLCEPT [Suspect]
     Active Substance: MYCOPHENOLATE MOFETIL
     Dosage: 1000 MILLIGRAM, QD
     Route: 065
     Dates: end: 20250120
  24. CELLCEPT [Suspect]
     Active Substance: MYCOPHENOLATE MOFETIL
     Dosage: 1000 MILLIGRAM, QD
     Dates: end: 20250120
  25. THYMOGLOBULINE [Suspect]
     Active Substance: LAPINE T-LYMPHOCYTE IMMUNE GLOBULIN
     Indication: Prophylaxis against transplant rejection
     Dosage: 25 MILLIGRAM, QD
     Dates: start: 20250113, end: 20250117
  26. THYMOGLOBULINE [Suspect]
     Active Substance: LAPINE T-LYMPHOCYTE IMMUNE GLOBULIN
     Dosage: 25 MILLIGRAM, QD
     Route: 065
     Dates: start: 20250113, end: 20250117
  27. THYMOGLOBULINE [Suspect]
     Active Substance: LAPINE T-LYMPHOCYTE IMMUNE GLOBULIN
     Dosage: 25 MILLIGRAM, QD
     Route: 065
     Dates: start: 20250113, end: 20250117
  28. THYMOGLOBULINE [Suspect]
     Active Substance: LAPINE T-LYMPHOCYTE IMMUNE GLOBULIN
     Dosage: 25 MILLIGRAM, QD
     Dates: start: 20250113, end: 20250117
  29. IVERMECTIN [Suspect]
     Active Substance: IVERMECTIN
     Indication: Infestation
     Dates: start: 20250116, end: 20250116
  30. IVERMECTIN [Suspect]
     Active Substance: IVERMECTIN
     Route: 065
     Dates: start: 20250116, end: 20250116
  31. IVERMECTIN [Suspect]
     Active Substance: IVERMECTIN
     Route: 065
     Dates: start: 20250116, end: 20250116
  32. IVERMECTIN [Suspect]
     Active Substance: IVERMECTIN
     Dates: start: 20250116, end: 20250116
  33. VALGANCICLOVIR [Concomitant]
     Active Substance: VALGANCICLOVIR
  34. VALGANCICLOVIR [Concomitant]
     Active Substance: VALGANCICLOVIR
     Route: 065
  35. VALGANCICLOVIR [Concomitant]
     Active Substance: VALGANCICLOVIR
     Route: 065
  36. VALGANCICLOVIR [Concomitant]
     Active Substance: VALGANCICLOVIR
  37. PREDNISOLONE [Concomitant]
     Active Substance: PREDNISOLONE
  38. PREDNISOLONE [Concomitant]
     Active Substance: PREDNISOLONE
     Route: 065
  39. PREDNISOLONE [Concomitant]
     Active Substance: PREDNISOLONE
     Route: 065
  40. PREDNISOLONE [Concomitant]
     Active Substance: PREDNISOLONE
  41. TACROLIMUS [Concomitant]
     Active Substance: TACROLIMUS
  42. TACROLIMUS [Concomitant]
     Active Substance: TACROLIMUS
     Route: 065
  43. TACROLIMUS [Concomitant]
     Active Substance: TACROLIMUS
     Route: 065
  44. TACROLIMUS [Concomitant]
     Active Substance: TACROLIMUS
  45. NEBIVOLOL [Concomitant]
     Active Substance: NEBIVOLOL
  46. NEBIVOLOL [Concomitant]
     Active Substance: NEBIVOLOL
  47. KARDEGIC [Concomitant]
     Active Substance: ASPIRIN DL-LYSINE
  48. KARDEGIC [Concomitant]
     Active Substance: ASPIRIN DL-LYSINE
     Route: 065
  49. KARDEGIC [Concomitant]
     Active Substance: ASPIRIN DL-LYSINE
     Route: 065
  50. KARDEGIC [Concomitant]
     Active Substance: ASPIRIN DL-LYSINE
  51. AMPHOTERICIN B [Concomitant]
     Active Substance: AMPHOTERICIN B
  52. AMPHOTERICIN B [Concomitant]
     Active Substance: AMPHOTERICIN B
     Route: 065
  53. AMPHOTERICIN B [Concomitant]
     Active Substance: AMPHOTERICIN B
     Route: 065
  54. AMPHOTERICIN B [Concomitant]
     Active Substance: AMPHOTERICIN B
  55. GAVISCON [Concomitant]
     Active Substance: ALUMINUM HYDROXIDE\MAGNESIUM CARBONATE
  56. GAVISCON [Concomitant]
     Active Substance: ALUMINUM HYDROXIDE\MAGNESIUM CARBONATE
     Route: 065
  57. GAVISCON [Concomitant]
     Active Substance: ALUMINUM HYDROXIDE\MAGNESIUM CARBONATE
     Route: 065
  58. GAVISCON [Concomitant]
     Active Substance: ALUMINUM HYDROXIDE\MAGNESIUM CARBONATE
  59. ZOPICLONE [Concomitant]
     Active Substance: ZOPICLONE
  60. ZOPICLONE [Concomitant]
     Active Substance: ZOPICLONE
     Route: 065
  61. ZOPICLONE [Concomitant]
     Active Substance: ZOPICLONE
     Route: 065
  62. ZOPICLONE [Concomitant]
     Active Substance: ZOPICLONE
  63. ATOVAQUONE [Concomitant]
     Active Substance: ATOVAQUONE
  64. ATOVAQUONE [Concomitant]
     Active Substance: ATOVAQUONE
     Route: 065
  65. ATOVAQUONE [Concomitant]
     Active Substance: ATOVAQUONE
     Route: 065
  66. ATOVAQUONE [Concomitant]
     Active Substance: ATOVAQUONE
  67. AUGMENTIN [Concomitant]
     Active Substance: AMOXICILLIN\CLAVULANATE POTASSIUM
  68. AUGMENTIN [Concomitant]
     Active Substance: AMOXICILLIN\CLAVULANATE POTASSIUM
     Route: 065
  69. AUGMENTIN [Concomitant]
     Active Substance: AMOXICILLIN\CLAVULANATE POTASSIUM
     Route: 065
  70. AUGMENTIN [Concomitant]
     Active Substance: AMOXICILLIN\CLAVULANATE POTASSIUM
  71. URAPIDIL [Concomitant]
     Active Substance: URAPIDIL
  72. URAPIDIL [Concomitant]
     Active Substance: URAPIDIL
     Route: 065
  73. URAPIDIL [Concomitant]
     Active Substance: URAPIDIL
     Route: 065
  74. URAPIDIL [Concomitant]
     Active Substance: URAPIDIL
  75. NEFOPAM [Concomitant]
     Active Substance: NEFOPAM
  76. NEFOPAM [Concomitant]
     Active Substance: NEFOPAM
     Route: 065
  77. NEFOPAM [Concomitant]
     Active Substance: NEFOPAM
     Route: 065
  78. NEFOPAM [Concomitant]
     Active Substance: NEFOPAM
  79. TRAMADOL HYDROCHLORIDE [Concomitant]
     Active Substance: TRAMADOL HYDROCHLORIDE
  80. TRAMADOL HYDROCHLORIDE [Concomitant]
     Active Substance: TRAMADOL HYDROCHLORIDE
     Route: 065
  81. TRAMADOL HYDROCHLORIDE [Concomitant]
     Active Substance: TRAMADOL HYDROCHLORIDE
     Route: 065
  82. TRAMADOL HYDROCHLORIDE [Concomitant]
     Active Substance: TRAMADOL HYDROCHLORIDE
  83. ONDANSETRON [Concomitant]
     Active Substance: ONDANSETRON
  84. ONDANSETRON [Concomitant]
     Active Substance: ONDANSETRON
     Route: 065
  85. ONDANSETRON [Concomitant]
     Active Substance: ONDANSETRON
     Route: 065
  86. ONDANSETRON [Concomitant]
     Active Substance: ONDANSETRON
  87. POLARAMINE [Concomitant]
     Active Substance: DEXCHLORPHENIRAMINE MALEATE
  88. POLARAMINE [Concomitant]
     Active Substance: DEXCHLORPHENIRAMINE MALEATE
     Route: 065
  89. POLARAMINE [Concomitant]
     Active Substance: DEXCHLORPHENIRAMINE MALEATE
     Route: 065
  90. POLARAMINE [Concomitant]
     Active Substance: DEXCHLORPHENIRAMINE MALEATE

REACTIONS (1)
  - Hepatocellular injury [Recovering/Resolving]

NARRATIVE: CASE EVENT DATE: 20250115
